FAERS Safety Report 7608377-0 (Version None)
Quarter: 2011Q3

REPORT INFORMATION
  Report Type: 
  Country: None (occurrence: None)
  Receive Date: 20110714
  Receipt Date: 20110531
  Transmission Date: 20111222
  Serious: No
  Sender: FDA-Public Use
  Company Number: US-TYCO HEALTHCARE/MALLINCKRODT-T201101167

PATIENT
  Sex: Female
  Weight: 58.957 kg

DRUGS (4)
  1. MORPHINE [Suspect]
     Indication: PAIN
     Dosage: 30 MG, Q 12 HOURS
     Dates: start: 20110523, end: 20110524
  2. DIAZEPAM [Concomitant]
     Indication: POST-TRAUMATIC STRESS DISORDER
     Dosage: 5 MG, UNK
  3. OXYCODONE HCL [Concomitant]
     Dosage: 15 MG, Q 6 HOURS
  4. AMBIEN [Concomitant]
     Dosage: 10 MG, UNK

REACTIONS (17)
  - BREAST SWELLING [None]
  - NECK PAIN [None]
  - BREAST TENDERNESS [None]
  - ANXIETY [None]
  - HEART RATE INCREASED [None]
  - MALAISE [None]
  - TINNITUS [None]
  - SINUS CONGESTION [None]
  - PARAESTHESIA [None]
  - BLOOD PRESSURE INCREASED [None]
  - FORMICATION [None]
  - HOT FLUSH [None]
  - MUSCLE TWITCHING [None]
  - FEELING ABNORMAL [None]
  - PAIN [None]
  - HEADACHE [None]
  - NAUSEA [None]
